FAERS Safety Report 24054781 (Version 1)
Quarter: 2024Q3

REPORT INFORMATION
  Report Type: Spontaneous
  Country: US (occurrence: None)
  Receive Date: 20240703
  Receipt Date: 20240703
  Transmission Date: 20241016
  Serious: Yes (Hospitalization)
  Sender: Public
  Company Number: None

PATIENT
  Sex: Male

DRUGS (8)
  1. TEMOZOLOMIDE [Suspect]
     Active Substance: TEMOZOLOMIDE
     Indication: Brain neoplasm malignant
     Dosage: FREQ: TAKE 2 CAPSULES (200 MG) BY MOUTH NIGHTLY FOR 5 DAYS AT BEDTIME WITH 1 OTHER TEMQZQLQMIDE ?PRE
     Route: 048
     Dates: start: 20240212
  2. INSULIN LISP [Concomitant]
  3. METHOCARBAMOL [Concomitant]
     Active Substance: METHOCARBAMOL
  4. ONDANSETRON [Concomitant]
     Active Substance: ONDANSETRON
  5. PROCHLORPER [Concomitant]
  6. SENNA-S [Concomitant]
     Active Substance: DOCUSATE SODIUM\SENNOSIDES
  7. THYROID [Concomitant]
     Active Substance: LEVOTHYROXINE\LIOTHYRONINE
  8. TEMOZOLOMIDE [Concomitant]

REACTIONS (1)
  - Hospitalisation [None]
